FAERS Safety Report 6698034-X (Version None)
Quarter: 2010Q2

REPORT INFORMATION
  Report Type: 
  Country: None (occurrence: None)
  Receive Date: 20100427
  Receipt Date: 20100417
  Transmission Date: 20101027
  Serious: Yes (Death)
  Sender: FDA-Public Use
  Company Number: NL-TYCO HEALTHCARE/MALLINCKRODT-T201001070

PATIENT
  Age: 62 Year

DRUGS (1)
  1. OCTREOSCAN [Suspect]
     Indication: CARCINOID TUMOUR
     Dosage: 106.01 GBQ, UNK

REACTIONS (3)
  - ACUTE MYELOID LEUKAEMIA [None]
  - MYELODYSPLASTIC SYNDROME [None]
  - NEOPLASM PROGRESSION [None]
